FAERS Safety Report 19942693 (Version 1)
Quarter: 2021Q4

REPORT INFORMATION
  Report Type: Spontaneous
  Country: US (occurrence: US)
  Receive Date: 20211008
  Receipt Date: 20211008
  Transmission Date: 20220304
  Serious: Yes (Other)
  Sender: FDA-Public Use
  Company Number: None

PATIENT
  Age: 62 Year
  Sex: Female
  Weight: 72.9 kg

DRUGS (4)
  1. DELTASONE [Suspect]
     Active Substance: PREDNISONE
     Indication: Bronchitis
     Dosage: ?          QUANTITY:5 TABLET(S);OTHER FREQUENCY:VARIOUS DOSAGES;
     Route: 048
  2. SINGULAIR [Concomitant]
     Active Substance: MONTELUKAST SODIUM
  3. AMBUIN [Concomitant]
  4. VITAMINS [Concomitant]
     Active Substance: VITAMINS

REACTIONS (2)
  - Dry mouth [None]
  - Dry skin [None]

NARRATIVE: CASE EVENT DATE: 20211001
